FAERS Safety Report 18151322 (Version 2)
Quarter: 2020Q3

REPORT INFORMATION
  Report Type: Spontaneous
  Country: US (occurrence: US)
  Receive Date: 20200814
  Receipt Date: 20200825
  Transmission Date: 20201103
  Serious: Yes (Other)
  Sender: FDA-Public Use
  Company Number: US-JNJFOC-20200810110

PATIENT
  Age: 16 Year
  Sex: Female
  Weight: 48 kg

DRUGS (4)
  1. STELARA [Suspect]
     Active Substance: USTEKINUMAB
     Route: 058
  2. STELARA [Suspect]
     Active Substance: USTEKINUMAB
     Dosage: WEIGHED 48 KG
     Route: 058
     Dates: start: 20200417
  3. STELARA [Suspect]
     Active Substance: USTEKINUMAB
     Indication: GUTTATE PSORIASIS
     Route: 058
     Dates: start: 20191115
  4. STELARA [Suspect]
     Active Substance: USTEKINUMAB
     Dosage: WEIGHED 48 KG
     Route: 058
     Dates: start: 20191220

REACTIONS (1)
  - Facial paralysis [Unknown]
